FAERS Safety Report 6425725-8 (Version None)
Quarter: 2009Q4

REPORT INFORMATION
  Report Type: 
  Country: None (occurrence: None)
  Receive Date: 20091103
  Receipt Date: 20091026
  Transmission Date: 20100525
  Serious: Yes (Hospitalization)
  Sender: FDA-Public Use
  Company Number: PHHO2009US09454

PATIENT
  Sex: Male
  Weight: 99.7 kg

DRUGS (9)
  1. RAD 666 RAD+TAB [Suspect]
     Indication: NEUROENDOCRINE CARCINOMA
     Dosage: 5 MG, QD
     Route: 048
     Dates: start: 20090714, end: 20090724
  2. RAD 666 RAD+TAB [Suspect]
     Dosage: 5 MG, QD
     Route: 048
     Dates: start: 20090803
  3. SORAFENIB COMP-SORA+TAB [Suspect]
     Indication: NEUROENDOCRINE CARCINOMA
     Dosage: 200 MG, BID
     Route: 048
     Dates: start: 20090714, end: 20090724
  4. SORAFENIB COMP-SORA+TAB [Suspect]
     Dosage: 200 MG, BID
     Route: 048
     Dates: start: 20090803
  5. OCTREOTIDE ACETATE [Concomitant]
  6. ATIVAN [Concomitant]
     Indication: INSOMNIA
  7. CARDURA [Concomitant]
  8. HYDROCHLOROTHIAZIDE [Concomitant]
  9. REMERON [Concomitant]

REACTIONS (11)
  - CHILLS [None]
  - DIARRHOEA [None]
  - EYELID OEDEMA [None]
  - FATIGUE [None]
  - LIP SWELLING [None]
  - NAUSEA [None]
  - OROPHARYNGEAL PAIN [None]
  - PARAESTHESIA ORAL [None]
  - PYREXIA [None]
  - RASH [None]
  - SCLERAL OEDEMA [None]
